FAERS Safety Report 11112466 (Version 1)
Quarter: 2015Q2

REPORT INFORMATION
  Report Type: Spontaneous
  Country: US (occurrence: None)
  Receive Date: 20150505
  Receipt Date: 20150505
  Transmission Date: 20150821
  Serious: Yes (Life-Threatening, Hospitalization)
  Sender: FDA-Public Use
  Company Number: CC10400221717

PATIENT
  Age: 10 Year
  Sex: Female
  Weight: 20.5 kg

DRUGS (3)
  1. POTASSIUM [Concomitant]
     Active Substance: POTASSIUM
  2. CEFTRIAXONE 1G B. BRAUN MEDICAL [Suspect]
     Active Substance: CEFTRIAXONE
     Indication: PYREXIA
     Dosage: 1G INTRAVENOUS
     Route: 042
     Dates: start: 20140608
  3. ACETAMINOPHEN. [Concomitant]
     Active Substance: ACETAMINOPHEN

REACTIONS (1)
  - Anaphylactic reaction [None]

NARRATIVE: CASE EVENT DATE: 20140608
